FAERS Safety Report 5043375-5 (Version None)
Quarter: 2006Q2

REPORT INFORMATION
  Report Type: 
  Country: None (occurrence: None)
  Receive Date: 20060601
  Receipt Date: 20060227
  Transmission Date: 20061013
  Serious: No
  Sender: FDA-Public Use
  Company Number: 2006PV009356

PATIENT
  Age: 54 Year
  Sex: Female
  Weight: 115.2136 kg

DRUGS (5)
  1. BYETTA [Suspect]
     Indication: DIABETES MELLITUS NON-INSULIN-DEPENDENT
     Dosage: SEE IMAGE
     Route: 058
     Dates: start: 20051105, end: 20051204
  2. BYETTA [Suspect]
     Indication: DIABETES MELLITUS NON-INSULIN-DEPENDENT
     Dosage: SEE IMAGE
     Route: 058
     Dates: start: 20051205
  3. GLUCOPHAGE [Concomitant]
  4. ACTOS [Concomitant]
  5. INSULIN [Concomitant]

REACTIONS (2)
  - INJECTION SITE RASH [None]
  - WEIGHT DECREASED [None]
